FAERS Safety Report 8927893 (Version 2)
Quarter: 2012Q4

REPORT INFORMATION
  Report Type: 
  Country: US (occurrence: US)
  Receive Date: 20121127
  Receipt Date: 20121207
  Transmission Date: 20130627
  Serious: Yes (Other)
  Sender: FDA-Public Use
  Company Number: US-ROCHE-1160283

PATIENT
  Sex: Female
  Weight: 64.92 kg

DRUGS (9)
  1. PEGASYS [Suspect]
     Indication: HEPATITIS C
     Route: 058
     Dates: start: 20120620, end: 20121114
  2. RIBAVIRIN [Suspect]
     Indication: HEPATITIS C
     Route: 048
     Dates: start: 20120620, end: 20121114
  3. RIBAVIRIN [Suspect]
     Route: 048
     Dates: start: 20120620, end: 20121114
  4. PHENERGAN [Suspect]
     Indication: NAUSEA
     Route: 048
     Dates: start: 20120912, end: 20121114
  5. PHENERGAN [Suspect]
     Indication: VOMITING
  6. SYNTHROID [Concomitant]
     Indication: HYPOTHYROIDISM
     Route: 048
  7. CELEXA [Concomitant]
     Indication: DEPRESSION
     Route: 048
     Dates: start: 2011
  8. DOXEPIN [Concomitant]
     Route: 048
  9. VITAMIN D [Concomitant]

REACTIONS (1)
  - Extrapyramidal disorder [Recovered/Resolved]
